FAERS Safety Report 21199769 (Version 2)
Quarter: 2022Q3

REPORT INFORMATION
  Report Type: Spontaneous
  Country: US (occurrence: None)
  Receive Date: 20220811
  Receipt Date: 20220908
  Transmission Date: 20221027
  Serious: Yes (Hospitalization, Other)
  Sender: FDA-Public Use
  Company Number: 2022A281624

PATIENT
  Age: 80 Year
  Sex: Male
  Weight: 66.2 kg

DRUGS (2)
  1. BUDESONIDE\FORMOTEROL\GLYCOPYRRONIUM [Suspect]
     Active Substance: BUDESONIDE\FORMOTEROL\GLYCOPYRRONIUM
     Indication: Chronic obstructive pulmonary disease
     Dosage: 160 MCG/ 9 MCG/ 4.8 MCG INHALER 2 PUFFS TWO TIMES A DAY
     Route: 055
     Dates: start: 2020
  2. SYMBICORT [Suspect]
     Active Substance: BUDESONIDE\FORMOTEROL FUMARATE DIHYDRATE
     Indication: Chronic obstructive pulmonary disease
     Route: 055
     Dates: start: 2015, end: 2020

REACTIONS (15)
  - Blood blister [Unknown]
  - Aneurysm [Unknown]
  - Lung neoplasm malignant [Unknown]
  - Skin cancer [Unknown]
  - Chronic obstructive pulmonary disease [Not Recovered/Not Resolved]
  - Renal disorder [Unknown]
  - Angiopathy [Unknown]
  - Vascular occlusion [Unknown]
  - COVID-19 [Not Recovered/Not Resolved]
  - Head injury [Not Recovered/Not Resolved]
  - Diarrhoea [Unknown]
  - Product dispensing error [Not Recovered/Not Resolved]
  - Device use issue [Unknown]
  - Product dose omission issue [Unknown]
  - Device malfunction [Unknown]

NARRATIVE: CASE EVENT DATE: 20220101
